FAERS Safety Report 4847377-0 (Version None)
Quarter: 2005Q4

REPORT INFORMATION
  Report Type: 
  Country: None (occurrence: None)
  Receive Date: 20051202
  Receipt Date: 20051118
  Transmission Date: 20060501
  Serious: Yes (Hospitalization)
  Sender: FDA-Public Use
  Company Number: 2005-01394

PATIENT
  Age: 56 Year
  Sex: Female
  Weight: 55 kg

DRUGS (4)
  1. VELCADE [Suspect]
     Indication: MULTIPLE MYELOMA
     Dosage: 1.50 MG, 2/WEEK, INTRAVENOUS
     Route: 042
     Dates: start: 20050207, end: 20050324
  2. GABAPENTIN [Concomitant]
  3. BENEXOL [Concomitant]
  4. OMEPRAZOLE [Concomitant]

REACTIONS (7)
  - ABDOMINAL PAIN [None]
  - AUTONOMIC NEUROPATHY [None]
  - BILIARY COLIC [None]
  - CHOLELITHIASIS [None]
  - CONJUNCTIVITIS [None]
  - DYSPEPSIA [None]
  - INFLUENZA [None]
